FAERS Safety Report 11911050 (Version 3)
Quarter: 2016Q1

REPORT INFORMATION
  Report Type: Report from Study
  Country: US (occurrence: US)
  Receive Date: 20160112
  Receipt Date: 20160201
  Transmission Date: 20160526
  Serious: Yes (Life-Threatening)
  Sender: FDA-Public Use
  Company Number: US-SA-2015SA109400

PATIENT
  Age: 61 Year
  Sex: Female

DRUGS (1)
  1. LEMTRADA [Suspect]
     Active Substance: ALEMTUZUMAB
     Indication: MULTIPLE SCLEROSIS
     Route: 041
     Dates: start: 20150713, end: 20150717

REACTIONS (20)
  - Feeling abnormal [Unknown]
  - Rotator cuff syndrome [Unknown]
  - Muscular weakness [Unknown]
  - Urticaria [Recovering/Resolving]
  - Urinary tract infection [Unknown]
  - Pruritus [Unknown]
  - Fall [Unknown]
  - Somnolence [Unknown]
  - Rash erythematous [Unknown]
  - Fatigue [Recovered/Resolved]
  - Limb discomfort [Recovering/Resolving]
  - Disturbance in attention [Unknown]
  - Dry skin [Unknown]
  - Rash [Recovered/Resolved]
  - Paraesthesia [Unknown]
  - Pain [Unknown]
  - Dizziness [Unknown]
  - Head injury [Unknown]
  - Skin discolouration [Unknown]
  - Balance disorder [Recovering/Resolving]

NARRATIVE: CASE EVENT DATE: 2015
